FAERS Safety Report 5514168-7 (Version None)
Quarter: 2007Q4

REPORT INFORMATION
  Report Type: 
  Country: None (occurrence: None)
  Receive Date: 20071106
  Receipt Date: 20061101
  Transmission Date: 20080405
  Serious: Yes (Death, Hospitalization)
  Sender: FDA-Public Use
  Company Number: US200611000117

PATIENT
  Age: 45 Year
  Sex: Female

DRUGS (2)
  1. PROZAC [Suspect]
  2. VALIUM /NET/ (DIAZEPAM) [Concomitant]

REACTIONS (2)
  - COMPLETED SUICIDE [None]
  - MUSCLE SPASMS [None]
